FAERS Safety Report 6413550-3 (Version None)
Quarter: 2009Q4

REPORT INFORMATION
  Report Type: 
  Country: None (occurrence: None)
  Receive Date: 20091026
  Receipt Date: 20091009
  Transmission Date: 20100525
  Serious: Yes (Other)
  Sender: FDA-Public Use
  Company Number: PHEH2009US11302

PATIENT
  Sex: Female

DRUGS (1)
  1. TEKTURNA [Suspect]
     Dosage: 300 MG, UNK
     Route: 048
     Dates: start: 20090825

REACTIONS (5)
  - CHILLS [None]
  - DIZZINESS [None]
  - EYE ROLLING [None]
  - HYPERHIDROSIS [None]
  - TREMOR [None]
